FAERS Safety Report 6698118-6 (Version None)
Quarter: 2010Q2

REPORT INFORMATION
  Report Type: 
  Country: None (occurrence: None)
  Receive Date: 20100427
  Receipt Date: 20100416
  Transmission Date: 20101027
  Serious: Yes (Hospitalization)
  Sender: FDA-Public Use
  Company Number: DE-PFIZER INC-2008078951

PATIENT
  Age: 74 Year
  Sex: Female
  Weight: 71 kg

DRUGS (10)
  1. SUNITINIB MALATE [Suspect]
     Indication: COLORECTAL CANCER METASTATIC
     Dosage: UNK
     Route: 048
     Dates: start: 20080731, end: 20080915
  2. IRINOTECAN HCL [Suspect]
     Indication: COLORECTAL CANCER METASTATIC
     Dosage: 244MG/ EVERY 2 WEEKS
     Route: 042
     Dates: start: 20080731, end: 20080909
  3. FLUOROURACIL [Suspect]
     Indication: COLORECTAL CANCER METASTATIC
     Dosage: 725 MG, EVERY 2 WEEKS
     Route: 040
     Dates: start: 20080731, end: 20080909
  4. FLUOROURACIL [Suspect]
     Dosage: 4365 MG, EVERY 2 WEEKS
     Route: 042
     Dates: start: 20080731, end: 20080911
  5. CALCIUM FOLINATE [Suspect]
     Indication: COLORECTAL CANCER METASTATIC
     Dosage: 725MG/EVERY 2 WEEKS
     Route: 042
     Dates: start: 20080731, end: 20080909
  6. AMLODIPINE [Concomitant]
     Dates: start: 20070220
  7. RAMIPRIL [Concomitant]
     Dates: start: 20080808
  8. LEVOTHYROXINE SODIUM [Concomitant]
     Dates: start: 20080724
  9. FENTANYL-100 [Concomitant]
     Dates: start: 20080722
  10. METOPROLOL SUCCINATE [Concomitant]
     Dates: start: 20080811

REACTIONS (1)
  - VERTIGO [None]
